FAERS Safety Report 9049537 (Version 5)
Quarter: 2013Q1

REPORT INFORMATION
  Report Type: Spontaneous
  Country: US (occurrence: US)
  Receive Date: 20130131
  Receipt Date: 20130214
  Transmission Date: 20140127
  Serious: Yes (Hospitalization)
  Sender: FDA-Public Use
  Company Number: US-GILEAD-2013-0067897

PATIENT
  Sex: Male

DRUGS (7)
  1. LETAIRIS [Suspect]
     Indication: PULMONARY HYPERTENSION
     Dosage: 10 MG, QD
     Route: 048
     Dates: start: 20121124
  2. LETAIRIS [Suspect]
     Dosage: 5 MG, UNK
     Route: 048
     Dates: start: 20130204, end: 20130205
  3. ADCIRCA [Concomitant]
  4. TYVASO [Concomitant]
  5. CARVEDILOL [Concomitant]
  6. LASIX                              /00032601/ [Concomitant]
  7. LISINOPRIL [Concomitant]

REACTIONS (6)
  - Renal failure acute [Recovering/Resolving]
  - Urinary tract infection fungal [Recovered/Resolved]
  - Urethral haemorrhage [Recovered/Resolved]
  - Anaemia [Recovered/Resolved]
  - Weight increased [Recovered/Resolved]
  - Hypotension [Recovered/Resolved]
